FAERS Safety Report 7315216-4 (Version None)
Quarter: 2011Q1

REPORT INFORMATION
  Report Type: 
  Country: None (occurrence: None)
  Receive Date: 20110225
  Receipt Date: 20110216
  Transmission Date: 20110831
  Serious: Yes (Other)
  Sender: FDA-Public Use
  Company Number: US-JNJFOC-20110107657

PATIENT
  Sex: Female
  Weight: 58.97 kg

DRUGS (3)
  1. TOPIRAMATE [Suspect]
     Indication: CONVULSION PROPHYLAXIS
     Route: 048
  2. TOPAMAX [Suspect]
     Indication: CONVULSION PROPHYLAXIS
     Route: 048
  3. ORTHO TRI-CYCLEN [Suspect]
     Indication: CONTRACEPTION
     Route: 048

REACTIONS (4)
  - MYDRIASIS [None]
  - ADVERSE EVENT [None]
  - CONFUSIONAL STATE [None]
  - MIGRAINE [None]
